FAERS Safety Report 6834246-X (Version None)
Quarter: 2010Q3

REPORT INFORMATION
  Report Type: 
  Country: None (occurrence: None)
  Receive Date: 20100712
  Receipt Date: 20070706
  Transmission Date: 20110219
  Serious: No
  Sender: FDA-Public Use
  Company Number: US-PFIZER INC-2007034049

PATIENT
  Sex: Female
  Weight: 58.29 kg

DRUGS (13)
  1. CHANTIX [Suspect]
     Indication: SMOKING CESSATION THERAPY
     Route: 048
     Dates: start: 20070417
  2. MONTELUKAST SODIUM [Concomitant]
  3. TRAZODONE HYDROCHLORIDE [Concomitant]
  4. KLONOPIN [Concomitant]
  5. CYMBALTA [Concomitant]
  6. SPIRIVA [Concomitant]
  7. ADVAIR DISKUS 100/50 [Concomitant]
  8. CELEXA [Concomitant]
  9. FLEXERIL [Concomitant]
  10. OMEPRAZOLE [Concomitant]
  11. CELEBREX [Concomitant]
  12. ACETYLSALICYLIC ACID [Concomitant]
  13. VITAMINS [Concomitant]

REACTIONS (2)
  - INCORRECT DOSE ADMINISTERED [None]
  - NAUSEA [None]
